FAERS Safety Report 4530265-7 (Version None)
Quarter: 2004Q4

REPORT INFORMATION
  Report Type: 
  Country: None (occurrence: None)
  Receive Date: 20041215
  Receipt Date: 20041202
  Transmission Date: 20050328
  Serious: Yes (Other)
  Sender: FDA-Public Use
  Company Number: 2004103557

PATIENT

DRUGS (2)
  1. VIAGRA [Suspect]
     Indication: ILL-DEFINED DISORDER
  2. SOTALOL HCL [Suspect]
     Indication: ILL-DEFINED DISORDER

REACTIONS (2)
  - DRUG INTERACTION [None]
  - MYOCARDIAL INFARCTION [None]
